FAERS Safety Report 6291263-9 (Version None)
Quarter: 2009Q3

REPORT INFORMATION
  Report Type: 
  Country: None (occurrence: None)
  Receive Date: 20090728
  Receipt Date: 20090728
  Transmission Date: 20100115
  Serious: Yes (Other)
  Sender: FDA-Public Use
  Company Number: None

PATIENT
  Sex: Female

DRUGS (1)
  1. VYVANSE [Suspect]
     Indication: ATTENTION DEFICIT/HYPERACTIVITY DISORDER
     Dosage: 1 CAPSULE EVERY MORNING PO
     Route: 048
     Dates: start: 20090719, end: 20090726

REACTIONS (4)
  - FLAT AFFECT [None]
  - LETHARGY [None]
  - SUICIDAL IDEATION [None]
  - TREMOR [None]
